FAERS Safety Report 6271343-4 (Version None)
Quarter: 2009Q3

REPORT INFORMATION
  Report Type: 
  Country: None (occurrence: None)
  Receive Date: 20090716
  Receipt Date: 20090716
  Transmission Date: 20100115
  Serious: No
  Sender: FDA-Public Use
  Company Number: None

PATIENT
  Sex: Male

DRUGS (1)
  1. KLONOPIN [Suspect]

REACTIONS (4)
  - CONFUSIONAL STATE [None]
  - MYOCARDIAL INFARCTION [None]
  - NERVOUSNESS [None]
  - RENAL FAILURE [None]
